FAERS Safety Report 22628024 (Version 1)
Quarter: 2023Q2

REPORT INFORMATION
  Report Type: Spontaneous
  Country: IT (occurrence: IT)
  Receive Date: 20230622
  Receipt Date: 20230622
  Transmission Date: 20230722
  Serious: No
  Sender: FDA-Public Use
  Company Number: IT-PFIZER INC-PV202300038708

PATIENT

DRUGS (1)
  1. REFACTO [Suspect]
     Active Substance: ANTIHEMOPHILIC FACTOR, HUMAN RECOMBINANT RESIDUES 743-1636 DELETED

REACTIONS (1)
  - Drug delivery system malfunction [Unknown]
